FAERS Safety Report 8811327 (Version 1)
Quarter: 2012Q4

REPORT INFORMATION
  Report Type: 
  Country: US (occurrence: US)
  Receive Date: 20120927
  Receipt Date: 20120927
  Transmission Date: 20130627
  Serious: Yes (Other)
  Sender: FDA-Public Use
  Company Number: US-ELI_LILLY_AND_COMPANY-US201209004673

PATIENT
  Age: 70 Year
  Sex: Male

DRUGS (9)
  1. CYMBALTA [Suspect]
     Indication: FIBROMYALGIA
     Dosage: 60 mg, qd
     Dates: start: 201003, end: 201207
  2. ATENOLOL [Concomitant]
  3. PHOSLO [Concomitant]
  4. SIMVASTATIN [Concomitant]
  5. DILAUDID [Concomitant]
  6. KLONOPIN [Concomitant]
     Dosage: UNK UNK, each evening
  7. COLACE [Concomitant]
  8. PROTONIX [Concomitant]
  9. RENA-VITE [Concomitant]

REACTIONS (1)
  - Renal failure [Unknown]
